FAERS Safety Report 21333270 (Version 1)
Quarter: 2022Q3

REPORT INFORMATION
  Report Type: Spontaneous
  Country: DE (occurrence: None)
  Receive Date: 20220914
  Receipt Date: 20220914
  Transmission Date: 20221027
  Serious: Yes (Other)
  Sender: FDA-Public Use
  Company Number: DE-ROCHE-3178133

PATIENT
  Sex: Female

DRUGS (1)
  1. MABTHERA [Suspect]
     Active Substance: RITUXIMAB
     Indication: Multiple sclerosis
     Route: 065

REACTIONS (4)
  - Enterovirus myocarditis [Unknown]
  - Immunodeficiency [Unknown]
  - Infection [Unknown]
  - Off label use [Unknown]
